FAERS Safety Report 9254679 (Version 1)
Quarter: 2013Q2

REPORT INFORMATION
  Report Type: Other
  Country: FI (occurrence: FI)
  Receive Date: 20130424
  Receipt Date: 20130424
  Transmission Date: 20140414
  Serious: Yes (Other)
  Sender: FDA-Public Use
  Company Number: FI-RB-052727-13

PATIENT
  Sex: 0

DRUGS (1)
  1. BUPRENORPHINE UNSPECIFIED INGREDIENT [Suspect]
     Indication: DRUG DEPENDENCE
     Dosage: DOSAGE DETAILS UNKNOWN
     Route: 064

REACTIONS (2)
  - Foetal exposure during pregnancy [Recovered/Resolved]
  - Tonic clonic movements [Unknown]
